FAERS Safety Report 25742102 (Version 2)
Quarter: 2025Q4

REPORT INFORMATION
  Report Type: Spontaneous
  Country: AR (occurrence: AR)
  Receive Date: 20250829
  Receipt Date: 20251202
  Transmission Date: 20260118
  Serious: Yes (Other)
  Sender: PFIZER
  Company Number: AR-PFIZER INC-202500172041

PATIENT
  Age: 48 Year
  Sex: Female

DRUGS (11)
  1. GENOTROPIN [Suspect]
     Active Substance: SOMATROPIN
     Indication: Growth hormone deficiency
     Dosage: 0.6 MG, 1X/DAY, 7 TIMES A WEEK
     Dates: start: 20121114
  2. ACEMUK [Concomitant]
     Dosage: UNK
  3. ALBUTEROL [Concomitant]
     Active Substance: ALBUTEROL
     Indication: Respiratory therapy
     Dosage: UNK
  4. CLARITHROMYCIN [Concomitant]
     Active Substance: CLARITHROMYCIN
     Dosage: UNK
  5. BUDESONIDE\FORMOTEROL [Concomitant]
     Active Substance: BUDESONIDE\FORMOTEROL
     Indication: Respiratory therapy
     Dosage: UNK
  6. AIREAL [Concomitant]
     Dosage: UNK
  7. HIDROTISONA [Concomitant]
     Dosage: 15 MG, DAILY
  8. LEVOTHYROXINE [Concomitant]
     Active Substance: LEVOTHYROXINE
     Dosage: 100 UG, DAILY
  9. DESMOPRESSIN [Concomitant]
     Active Substance: DESMOPRESSIN
     Dosage: 0.1 MG, DAILY
  10. RISPERIDONE [Concomitant]
     Active Substance: RISPERIDONE
     Dosage: 0.25 (UNIT UNKNOWN), DAILY
  11. MAXIMA MD [Concomitant]
     Dosage: UNK

REACTIONS (2)
  - Pneumonia [Unknown]
  - Stress [Unknown]

NARRATIVE: CASE EVENT DATE: 20250514
